FAERS Safety Report 5789061-5 (Version None)
Quarter: 2008Q2

REPORT INFORMATION
  Report Type: 
  Country: None (occurrence: None)
  Receive Date: 20080626
  Receipt Date: 20080623
  Transmission Date: 20081010
  Serious: Yes (Death, Life-Threatening)
  Sender: FDA-Public Use
  Company Number: B0526716A

PATIENT
  Age: 66 Year

DRUGS (10)
  1. SAROTEX RETARD [Suspect]
     Indication: DEPRESSION
     Dosage: 25MG PER DAY
     Route: 048
  2. ZOFRAN [Suspect]
     Indication: DRUG USE FOR UNKNOWN INDICATION
     Route: 065
  3. AMITRIPTYLINE HCL [Suspect]
     Indication: DEPRESSION
     Dosage: 85MG PER DAY
     Route: 048
  4. RIVOTRIL [Suspect]
     Indication: DRUG USE FOR UNKNOWN INDICATION
     Dosage: .5MG TWICE PER DAY
     Route: 048
  5. SELOKEEN ZOC [Suspect]
     Indication: HYPERTENSION
     Dosage: 1000MG PER DAY
     Route: 048
  6. TRANSTEC [Suspect]
     Indication: PAIN
     Route: 062
  7. AMLODIPINE [Suspect]
     Indication: HYPERTENSION
     Dosage: 5MG PER DAY
     Route: 048
  8. DIOVAN [Suspect]
     Indication: HYPERTENSION
     Dosage: 80MG PER DAY
     Route: 048
  9. VALSARTAN [Suspect]
     Indication: HYPERTENSION
     Dosage: 25MG PER DAY
     Route: 048
  10. BACLOFEN [Suspect]
     Dosage: 10MG THREE TIMES PER DAY
     Route: 048

REACTIONS (2)
  - COMA [None]
  - DEATH [None]
